FAERS Safety Report 8218709-0 (Version None)
Quarter: 2012Q1

REPORT INFORMATION
  Report Type: 
  Country: None (occurrence: None)
  Receive Date: 20120319
  Receipt Date: 20120312
  Transmission Date: 20120608
  Serious: Yes (Hospitalization)
  Sender: FDA-Public Use
  Company Number: PHHY2011JP109558

PATIENT
  Sex: Female
  Weight: 40 kg

DRUGS (10)
  1. ALLOPURINOL [Concomitant]
     Indication: HYPERURICAEMIA
     Dosage: 100 MG, UNK
     Route: 048
     Dates: start: 20111111
  2. ACARDI [Concomitant]
     Indication: CARDIAC FAILURE
     Dosage: 2.5 MG, UNK
     Route: 048
     Dates: start: 20111111
  3. ASPIRIN [Concomitant]
     Dosage: 100 MG, UNK
     Route: 048
     Dates: start: 20111111
  4. LASIX [Concomitant]
     Indication: RENAL FAILURE CHRONIC
     Dosage: 40 MG, UNK
     Route: 048
     Dates: start: 20011111
  5. DIOVAN [Concomitant]
     Indication: HYPERTENSION
     Dosage: 80 MG, UNK
     Route: 048
     Dates: start: 20111111, end: 20111205
  6. BASEN OD [Concomitant]
     Indication: DIABETES MELLITUS
     Dosage: 0.9 MG, UNK
     Route: 048
     Dates: start: 20111111
  7. ARGAMATE [Concomitant]
     Indication: RENAL FAILURE CHRONIC
     Dosage: 100 G, UNK
     Dates: start: 20111111, end: 20111127
  8. EXJADE [Suspect]
     Indication: MYELODYSPLASTIC SYNDROME
     Dosage: 500 MG, DAILY
     Route: 048
     Dates: start: 20111111, end: 20111202
  9. LIVALO KOWA [Concomitant]
     Indication: HYPERLIPIDAEMIA
     Dosage: 2 MG, UNK
     Route: 048
     Dates: start: 20111111
  10. CARVEDILOL [Concomitant]
     Indication: CARDIAC FAILURE
     Dosage: 2.5 MG, UNK
     Route: 048
     Dates: start: 20111111

REACTIONS (5)
  - URINE OUTPUT DECREASED [None]
  - INFECTION [None]
  - C-REACTIVE PROTEIN INCREASED [None]
  - BLOOD CREATININE INCREASED [None]
  - RENAL FAILURE ACUTE [None]
